FAERS Safety Report 16821507 (Version 1)
Quarter: 2019Q3

REPORT INFORMATION
  Report Type: Spontaneous
  Country: US (occurrence: US)
  Receive Date: 20190918
  Receipt Date: 20190918
  Transmission Date: 20191005
  Serious: Yes (Life-Threatening, Other)
  Sender: FDA-Public Use
  Company Number: US-PFIZER INC-2019395884

PATIENT
  Age: 44 Year
  Sex: Male

DRUGS (13)
  1. METOPROLOL TARTRATE. [Suspect]
     Active Substance: METOPROLOL TARTRATE
     Dosage: UNK
  2. ATORVASTATIN CALCIUM. [Suspect]
     Active Substance: ATORVASTATIN CALCIUM
     Dosage: 10 MG, 1X/DAY
     Route: 065
  3. JYNARQUE [Suspect]
     Active Substance: TOLVAPTAN
     Dosage: 15 MG, 1X/DAY  (8 HOURS LATER)
     Route: 048
     Dates: end: 20190621
  4. CLONIDINE HCL [Concomitant]
     Active Substance: CLONIDINE HYDROCHLORIDE
     Dosage: 0.1 MG, UNK
  5. JYNARQUE [Suspect]
     Active Substance: TOLVAPTAN
     Indication: CONGENITAL CYSTIC KIDNEY DISEASE
     Dosage: 45 MG, 1X/DAY (45 MG (UPON WAKING)
     Route: 048
     Dates: start: 201810
  6. PROCARDIA [Concomitant]
     Active Substance: NIFEDIPINE
     Dosage: 30 MG, UNK
  7. LIPITOR [Concomitant]
     Active Substance: ATORVASTATIN CALCIUM
     Dosage: UNK
  8. METOPROLOL SUCCINATE. [Concomitant]
     Active Substance: METOPROLOL SUCCINATE
     Dosage: 100 MG, UNK
  9. ISOSORBIDE MONONITRATE. [Concomitant]
     Active Substance: ISOSORBIDE MONONITRATE
     Dosage: 60 MG, UNK
  10. CLONIDINE. [Suspect]
     Active Substance: CLONIDINE
     Dosage: UNK
  11. ISOSORBIDE. [Concomitant]
     Active Substance: ISOSORBIDE
     Dosage: UNK
  12. FUROSEMIDE. [Suspect]
     Active Substance: FUROSEMIDE
     Dosage: 20 MG, UNK
  13. LISINOPRIL. [Suspect]
     Active Substance: LISINOPRIL
     Dosage: 20 MG, UNK

REACTIONS (9)
  - Blood triglycerides increased [Not Recovered/Not Resolved]
  - Glomerular filtration rate decreased [Not Recovered/Not Resolved]
  - Blood creatinine increased [Not Recovered/Not Resolved]
  - High density lipoprotein decreased [Unknown]
  - Blood glucose increased [Unknown]
  - Hepatic steatosis [Unknown]
  - Thirst [Unknown]
  - Polyuria [Unknown]
  - Hepatic enzyme increased [Not Recovered/Not Resolved]

NARRATIVE: CASE EVENT DATE: 20181207
